FAERS Safety Report 7437496-7 (Version None)
Quarter: 2011Q2

REPORT INFORMATION
  Report Type: 
  Country: None (occurrence: None)
  Receive Date: 20110426
  Receipt Date: 20110418
  Transmission Date: 20111010
  Serious: Yes (Other)
  Sender: FDA-Public Use
  Company Number: PHHY2011US09506

PATIENT
  Sex: Female

DRUGS (2)
  1. ANTIDEPRESSANTS [Concomitant]
     Dosage: UNK
  2. GILENYA [Suspect]
     Indication: MULTIPLE SCLEROSIS
     Dosage: 0.5 MG, QD
     Route: 048
     Dates: start: 20101201, end: 20110328

REACTIONS (8)
  - PARANOIA [None]
  - AMENORRHOEA [None]
  - HEADACHE [None]
  - FATIGUE [None]
  - FURUNCLE [None]
  - GAIT DISTURBANCE [None]
  - BACK PAIN [None]
  - MOOD SWINGS [None]
